FAERS Safety Report 9173714 (Version 3)
Quarter: 2013Q3

REPORT INFORMATION
  Report Type: Spontaneous
  Country: DE (occurrence: None)
  Receive Date: 20130325
  Receipt Date: 20130910
  Transmission Date: 20140515
  Serious: Yes (Hospitalization, Disabling)
  Sender: FDA-Public Use
  Company Number: ACO_34718_2013

PATIENT
  Age: 43 Year
  Sex: Male

DRUGS (4)
  1. FAMPRIDINE [Suspect]
     Indication: MULTIPLE SCLEROSIS
     Route: 048
     Dates: start: 20120117
  2. AMLODIPINE (AMLODIPINE MALEATE) [Concomitant]
  3. TIZANIDINE (TIZANIDINE HYDROCHLORIDE) [Concomitant]
  4. CANDESARTAN (CANDESARTAN CILEXETIL) [Concomitant]

REACTIONS (6)
  - Cervical spinal stenosis [None]
  - Upper limb fracture [None]
  - Fall [None]
  - Gait disturbance [None]
  - Nail operation [None]
  - Injury [None]
